FAERS Safety Report 6093384-2 (Version None)
Quarter: 2009Q1

REPORT INFORMATION
  Report Type: 
  Country: None (occurrence: None)
  Receive Date: 20090223
  Receipt Date: 20090223
  Transmission Date: 20090719
  Serious: Yes (Other)
  Sender: FDA-Public Use
  Company Number: None

PATIENT
  Age: 41 Year
  Sex: Male
  Weight: 86.1834 kg

DRUGS (2)
  1. ISOTRETINOIN 40MG VARIOUS [Suspect]
     Indication: ACNE
     Dosage: 40MF TWICE A DAY PO
     Route: 048
     Dates: start: 20080909, end: 20090205
  2. ADDERALL 10 [Suspect]

REACTIONS (1)
  - DEPRESSION [None]
